FAERS Safety Report 8905891 (Version 2)
Quarter: 2012Q4

REPORT INFORMATION
  Report Type: 
  Country: FR (occurrence: FR)
  Receive Date: 20121109
  Receipt Date: 20121129
  Transmission Date: 20130627
  Serious: Yes (Hospitalization, Other)
  Sender: FDA-Public Use
  Company Number: FR-AMGEN-FRASP2012070747

PATIENT
  Sex: Male

DRUGS (4)
  1. PROLIA [Suspect]
     Indication: OSTEOPOROSIS
     Dosage: UNK
  2. CORTISONE [Concomitant]
  3. PROGRAF [Concomitant]
  4. CELLCEPT                           /01275102/ [Concomitant]

REACTIONS (4)
  - Diarrhoea [Unknown]
  - Cirrhosis alcoholic [Unknown]
  - Hypocalcaemia [Recovering/Resolving]
  - Vitamin D deficiency [Recovered/Resolved]
